FAERS Safety Report 6096147-7 (Version None)
Quarter: 2009Q1

REPORT INFORMATION
  Report Type: 
  Country: None (occurrence: None)
  Receive Date: 20090227
  Receipt Date: 20080916
  Transmission Date: 20090719
  Serious: No
  Sender: FDA-Public Use
  Company Number: A0747747A

PATIENT
  Age: 41 Year
  Sex: Female

DRUGS (16)
  1. LAMICTAL [Suspect]
     Indication: BIPOLAR DISORDER
     Dosage: 100MG TWICE PER DAY
     Route: 048
     Dates: start: 20071101, end: 20080902
  2. NEXIUM [Concomitant]
  3. CYMBALTA [Concomitant]
  4. ZOLPIDEM TARTRATE [Concomitant]
  5. SINGULAIR [Concomitant]
  6. SIMVASTATIN [Concomitant]
  7. LEVOTHYROXINE SODIUM [Concomitant]
  8. INVEGA [Concomitant]
  9. GABAPENTIN [Concomitant]
  10. LISINOPRIL [Concomitant]
  11. HYDROXYZINE PAMOATE [Concomitant]
  12. NOVOLIN [Concomitant]
  13. LANTUS [Concomitant]
  14. ALBUTEROL [Concomitant]
  15. IVERMECTIN [Concomitant]
  16. PERMETHRIN [Concomitant]

REACTIONS (3)
  - PURULENT DISCHARGE [None]
  - RASH ERYTHEMATOUS [None]
  - RASH VESICULAR [None]
